FAERS Safety Report 7851502-7 (Version None)
Quarter: 2011Q4

REPORT INFORMATION
  Report Type: 
  Country: None (occurrence: None)
  Receive Date: 20111026
  Receipt Date: 20111013
  Transmission Date: 20120403
  Serious: No
  Sender: FDA-Public Use
  Company Number: US-ROXANE LABORATORIES, INC.-2011-RO-01504RO

PATIENT
  Sex: Female

DRUGS (4)
  1. STELAZINE [Suspect]
  2. ATIVAN [Suspect]
  3. COGENTIN [Suspect]
     Dosage: 0.5 MG
  4. LITHIUM CARBONATE [Suspect]

REACTIONS (1)
  - SALIVARY HYPERSECRETION [None]
